FAERS Safety Report 4870728-8 (Version None)
Quarter: 2006Q1

REPORT INFORMATION
  Report Type: 
  Country: None (occurrence: None)
  Receive Date: 20060103
  Receipt Date: 20051228
  Transmission Date: 20060701
  Serious: Yes (Hospitalization)
  Sender: FDA-Public Use
  Company Number: FR-AVENTIS-200514389FR

PATIENT
  Age: 92 Year
  Sex: Female

DRUGS (9)
  1. LASILIX [Suspect]
     Route: 048
  2. CORVASAL [Suspect]
     Route: 048
  3. DIGOXIN [Suspect]
     Route: 048
  4. SINTROM [Suspect]
     Route: 048
  5. AMLOR [Suspect]
     Route: 048
  6. ARICEPT [Suspect]
     Route: 048
  7. MOPRAL [Concomitant]
     Route: 048
  8. EFFEXOR [Concomitant]
     Route: 048
  9. KALEORID [Concomitant]

REACTIONS (5)
  - ACCIDENTAL OVERDOSE [None]
  - ANAEMIA [None]
  - COAGULATION TIME PROLONGED [None]
  - HAEMATOMA [None]
  - INTERNATIONAL NORMALISED RATIO INCREASED [None]
